FAERS Safety Report 22161258 (Version 2)
Quarter: 2023Q2

REPORT INFORMATION
  Report Type: Report from Study
  Country: JP (occurrence: JP)
  Receive Date: 20230331
  Receipt Date: 20230413
  Transmission Date: 20230721
  Serious: Yes (Hospitalization)
  Sender: FDA-Public Use
  Company Number: JP-PFIZER INC-PV202300059364

PATIENT
  Age: 72 Year
  Sex: Male
  Weight: 63.4 kg

DRUGS (5)
  1. SIROLIMUS [Suspect]
     Active Substance: SIROLIMUS
     Indication: Lymphangioma
     Dosage: 2 MG,1 D
     Route: 048
     Dates: start: 20211125, end: 20211221
  2. SIROLIMUS [Suspect]
     Active Substance: SIROLIMUS
     Dosage: 3 MG,1 D
     Route: 048
     Dates: start: 20211222, end: 20220912
  3. SIROLIMUS [Suspect]
     Active Substance: SIROLIMUS
     Dosage: 2 MG,1 D
     Route: 048
     Dates: start: 20220913
  4. EDOXABAN TOSYLATE [Concomitant]
     Active Substance: EDOXABAN TOSYLATE
     Dosage: UNK
     Route: 048
     Dates: start: 20211215
  5. TRANEXAMIC ACID [Concomitant]
     Active Substance: TRANEXAMIC ACID
     Dosage: UNK
     Route: 048
     Dates: start: 20211209

REACTIONS (2)
  - Melaena [Recovered/Resolved]
  - Stomatitis [Recovered/Resolved]

NARRATIVE: CASE EVENT DATE: 20211216
